FAERS Safety Report 8345726-2 (Version None)
Quarter: 2012Q2

REPORT INFORMATION
  Report Type: 
  Country: None (occurrence: None)
  Receive Date: 20120508
  Receipt Date: 20120425
  Transmission Date: 20120825
  Serious: Yes (Hospitalization, Other)
  Sender: FDA-Public Use
  Company Number: US-ELI_LILLY_AND_COMPANY-US201204009491

PATIENT
  Sex: Female

DRUGS (13)
  1. ALBUTEROL SULFATE [Concomitant]
     Dosage: UNK, UNKNOWN
  2. ADVAIR DISKUS 100/50 [Concomitant]
     Dosage: 550 MG, BID
  3. GABAPENTIN [Concomitant]
     Dosage: 100 MG, BID
  4. FORTEO [Suspect]
     Indication: OSTEOPOROSIS
     Dosage: 20 UG, QD
     Dates: start: 20111201, end: 20120407
  5. FERROUS SULFATE TAB [Concomitant]
     Dosage: 325 MG, BID
  6. PROTONIX [Concomitant]
     Dosage: 40 MG, QD
  7. SPIRIVA [Concomitant]
     Dosage: 18 UG, QOD
  8. RANITIDINE [Concomitant]
     Dosage: 150 MG, BID
  9. TRAMADOL HYDROCHLORIDE [Concomitant]
     Dosage: 50 MG, PRN
  10. MAGNESIUM OXIDE [Concomitant]
     Dosage: 400 MG, QD
  11. LORAZEPAM [Concomitant]
     Dosage: 0.5 MG, BID
  12. PULMICORT [Concomitant]
     Dosage: UNK, BID
  13. VITAMIN C [Concomitant]
     Dosage: 500 MG, BID

REACTIONS (2)
  - PNEUMONIA [None]
  - LUNG NEOPLASM [None]
